FAERS Safety Report 17348093 (Version 1)
Quarter: 2020Q1

REPORT INFORMATION
  Report Type: Report from Study
  Country: CN (occurrence: CN)
  Receive Date: 20200130
  Receipt Date: 20200130
  Transmission Date: 20200409
  Serious: Yes (Life-Threatening, Hospitalization, Other)
  Sender: FDA-Public Use
  Company Number: NVSC2020CN023574

PATIENT
  Sex: Female
  Weight: 74 kg

DRUGS (10)
  1. LETROZOLE. [Suspect]
     Active Substance: LETROZOLE
     Indication: BREAST CANCER METASTATIC
     Dosage: 2.5 MG, QD
     Route: 048
     Dates: start: 20170915
  2. INOSITOL [Concomitant]
     Active Substance: INOSITOL
     Indication: GAMMA-GLUTAMYLTRANSFERASE INCREASED
     Dosage: UNK
     Route: 065
     Dates: start: 20191022
  3. LIVER EXTRACT [Concomitant]
     Active Substance: MAMMAL LIVER
     Indication: GAMMA-GLUTAMYLTRANSFERASE INCREASED
     Dosage: UNK
     Route: 065
     Dates: start: 20191022
  4. CALCIUM CARBONATE. [Concomitant]
     Active Substance: CALCIUM CARBONATE
     Indication: PROPHYLAXIS
     Dosage: UNK
     Route: 065
     Dates: start: 20171110
  5. SILYBIN [Concomitant]
     Indication: GAMMA-GLUTAMYLTRANSFERASE INCREASED
     Dosage: UNK
     Route: 065
     Dates: start: 20191022
  6. LETROZOLE. [Suspect]
     Active Substance: LETROZOLE
     Dosage: 2.5 MG, QD
     Route: 048
     Dates: start: 20191224
  7. VITAMIN B12 [Concomitant]
     Active Substance: CYANOCOBALAMIN
     Indication: GAMMA-GLUTAMYLTRANSFERASE INCREASED
     Dosage: UNK
     Route: 065
     Dates: start: 20191022
  8. BICYCLOL [Concomitant]
     Active Substance: BICYCLOL
     Indication: ASPARTATE AMINOTRANSFERASE INCREASED
     Dosage: UNK
     Route: 065
     Dates: start: 20170905
  9. GLUTATHIONE [Concomitant]
     Active Substance: GLUTATHIONE
     Indication: BLOOD BILIRUBIN INCREASED
     Dosage: UNK
     Route: 065
     Dates: start: 20181206
  10. MEGLUMINE [Concomitant]
     Active Substance: MEGLUMINE
     Indication: GAMMA-GLUTAMYLTRANSFERASE INCREASED
     Dosage: UNK
     Route: 065
     Dates: start: 20191022

REACTIONS (9)
  - Gamma-glutamyltransferase increased [Recovering/Resolving]
  - Hepatic function abnormal [Unknown]
  - Alanine aminotransferase increased [Unknown]
  - Hypertriglyceridaemia [Unknown]
  - Blood albumin decreased [Unknown]
  - Concomitant disease aggravated [Unknown]
  - Aspartate aminotransferase increased [Unknown]
  - Blood cholesterol increased [Unknown]
  - Hyperbilirubinaemia [Unknown]
